FAERS Safety Report 5017883-7 (Version None)
Quarter: 2006Q2

REPORT INFORMATION
  Report Type: 
  Country: None (occurrence: None)
  Receive Date: 20060530
  Receipt Date: 20060518
  Transmission Date: 20061013
  Serious: Yes (Hospitalization, Other)
  Sender: FDA-Public Use
  Company Number: 2005149740

PATIENT
  Age: 50 Year
  Sex: Female

DRUGS (3)
  1. GEODON [Suspect]
     Indication: ILL-DEFINED DISORDER
     Dosage: SEE IMAGE
  2. LAMOTRIGINE [Concomitant]
  3. OXCARBAZEPINE [Concomitant]

REACTIONS (3)
  - ABNORMAL BEHAVIOUR [None]
  - AGGRESSION [None]
  - CONVULSION [None]
